FAERS Safety Report 10272949 (Version 1)
Quarter: 2014Q2

REPORT INFORMATION
  Report Type: Spontaneous
  Country: US (occurrence: None)
  Receive Date: 20140630
  Receipt Date: 20140630
  Transmission Date: 20141212
  Serious: No
  Sender: FDA-Public Use
  Company Number: None

PATIENT
  Age: 55 Year
  Sex: Female
  Weight: 86.18 kg

DRUGS (2)
  1. CIPRO [Suspect]
     Indication: SINUSITIS
     Dosage: 1 PILL 2 TIMES DAILY TWICE DAILY TAKEN BY MOUTH
     Route: 048
     Dates: start: 20140604, end: 20140626
  2. CIPRO [Suspect]
     Indication: OSTEOMYELITIS
     Dosage: 1 PILL 2 TIMES DAILY TWICE DAILY TAKEN BY MOUTH
     Route: 048
     Dates: start: 20140604, end: 20140626

REACTIONS (6)
  - Tendon disorder [None]
  - Infection [None]
  - Tendon pain [None]
  - Fatigue [None]
  - Memory impairment [None]
  - Adverse reaction [None]
